FAERS Safety Report 18376654 (Version 1)
Quarter: 2020Q4

REPORT INFORMATION
  Report Type: Spontaneous
  Country: US (occurrence: US)
  Receive Date: 20201012
  Receipt Date: 20201012
  Transmission Date: 20210114
  Serious: Yes (Hospitalization)
  Sender: FDA-Public Use
  Company Number: None

PATIENT
  Age: 44 Year
  Sex: Female

DRUGS (6)
  1. LEVOTHYROXINE. [Concomitant]
     Active Substance: LEVOTHYROXINE
  2. PANTOPRAZOLE [Concomitant]
     Active Substance: PANTOPRAZOLE
  3. LIBRAX [Concomitant]
     Active Substance: CHLORDIAZEPOXIDE HYDROCHLORIDE\CLIDINIUM BROMIDE
  4. TYLENOL [Concomitant]
     Active Substance: ACETAMINOPHEN
  5. NEUPOGEN [Suspect]
     Active Substance: FILGRASTIM
     Indication: NON-HODGKIN^S LYMPHOMA
     Dosage: ?          OTHER FREQUENCY:TWO TIMES A WEEK;?
     Route: 058
  6. PROBIOTIC [Concomitant]
     Active Substance: PROBIOTICS NOS

REACTIONS (1)
  - White blood cell count increased [None]

NARRATIVE: CASE EVENT DATE: 20201009
